FAERS Safety Report 7681576-8 (Version None)
Quarter: 2011Q3

REPORT INFORMATION
  Report Type: 
  Country: None (occurrence: None)
  Receive Date: 20110812
  Receipt Date: 20110803
  Transmission Date: 20111222
  Serious: Yes (Other)
  Sender: FDA-Public Use
  Company Number: PHHY2011JP63143

PATIENT

DRUGS (1)
  1. TEGRETOL [Suspect]
     Dosage: UNK UKN, UNK
     Route: 048

REACTIONS (4)
  - HEAT ILLNESS [None]
  - HYPOCALCAEMIA [None]
  - PARATHYROID DISORDER [None]
  - DIZZINESS [None]
